FAERS Safety Report 18682080 (Version 2)
Quarter: 2021Q1

REPORT INFORMATION
  Report Type: Spontaneous
  Country: JP (occurrence: JP)
  Receive Date: 20201229
  Receipt Date: 20210122
  Transmission Date: 20210419
  Serious: No
  Sender: FDA-Public Use
  Company Number: JP-JNJFOC-20201228012

PATIENT

DRUGS (3)
  1. DUROTEP [Suspect]
     Active Substance: FENTANYL
     Indication: CANCER PAIN
     Dosage: DOSE UNKNOWN, STRENGTH: UNKNOWN
     Route: 062
  2. DUROTEP [Suspect]
     Active Substance: FENTANYL
  3. DUROTEP [Suspect]
     Active Substance: FENTANYL

REACTIONS (3)
  - Wrong technique in product usage process [Unknown]
  - Off label use [Unknown]
  - Product adhesion issue [Unknown]
